FAERS Safety Report 23032921 (Version 3)
Quarter: 2023Q4

REPORT INFORMATION
  Report Type: Spontaneous
  Country: US (occurrence: US)
  Receive Date: 20231005
  Receipt Date: 20231026
  Transmission Date: 20240109
  Serious: No
  Sender: FDA-Public Use
  Company Number: US-SANOFI-01778995

PATIENT
  Age: 73 Year
  Sex: Male

DRUGS (1)
  1. LANTUS SOLOSTAR [Suspect]
     Active Substance: INSULIN GLARGINE
     Indication: Type 2 diabetes mellitus
     Dosage: 70 IU, BID, AND DRUG TREATMENT DURATION: ABOUT 12 YEARS
     Dates: start: 20230625

REACTIONS (13)
  - Fall [Unknown]
  - Photopsia [Unknown]
  - Rib fracture [Unknown]
  - Shoulder fracture [Unknown]
  - Hand fracture [Unknown]
  - Hypoaesthesia [Unknown]
  - Asthenia [Unknown]
  - Feeling abnormal [Unknown]
  - Diplopia [Recovering/Resolving]
  - Vision blurred [Unknown]
  - Blood glucose abnormal [Unknown]
  - Blood glucose decreased [Unknown]
  - Off label use [Unknown]

NARRATIVE: CASE EVENT DATE: 20230101
